FAERS Safety Report 25233738 (Version 1)
Quarter: 2025Q2

REPORT INFORMATION
  Report Type: Spontaneous
  Country: GB (occurrence: GB)
  Receive Date: 20250424
  Receipt Date: 20250424
  Transmission Date: 20250716
  Serious: Yes (Other)
  Sender: ALKEM
  Company Number: None

PATIENT
  Age: 25 Year
  Sex: Female

DRUGS (2)
  1. QUETIAPINE FUMARATE [Suspect]
     Active Substance: QUETIAPINE FUMARATE
     Indication: Schizophrenia
     Route: 065
     Dates: start: 20060101
  2. QUETIAPINE FUMARATE [Suspect]
     Active Substance: QUETIAPINE FUMARATE
     Indication: Aggression

REACTIONS (7)
  - Mania [Unknown]
  - Aggression [Unknown]
  - Blood sodium decreased [Unknown]
  - Hyponatraemia [Unknown]
  - Antisocial behaviour [Unknown]
  - Head discomfort [Unknown]
  - Pallor [Unknown]

NARRATIVE: CASE EVENT DATE: 20060101
